FAERS Safety Report 13155851 (Version 1)
Quarter: 2017Q1

REPORT INFORMATION
  Report Type: Spontaneous
  Country: US (occurrence: US)
  Receive Date: 20170126
  Receipt Date: 20170126
  Transmission Date: 20170428
  Serious: Yes (Other)
  Sender: FDA-Public Use
  Company Number: US-ROCHE-1254057

PATIENT
  Age: 57 Year
  Sex: Female

DRUGS (2)
  1. VALIUM [Suspect]
     Active Substance: DIAZEPAM
     Indication: PRODUCT USED FOR UNKNOWN INDICATION
     Route: 048
     Dates: start: 201211, end: 201305
  2. LEVORPHANOL TARTRATE. [Concomitant]
     Active Substance: LEVORPHANOL TARTRATE

REACTIONS (1)
  - Hypersensitivity [Recovered/Resolved]
